FAERS Safety Report 4323161-1 (Version None)
Quarter: 2004Q1

REPORT INFORMATION
  Report Type: 
  Country: None (occurrence: None)
  Receive Date: 20040322
  Receipt Date: 20040310
  Transmission Date: 20041129
  Serious: Yes (Death)
  Sender: FDA-Public Use
  Company Number: MK200403-0102-1

PATIENT
  Age: 43 Year
  Sex: Male

DRUGS (2)
  1. MORPHINE SULFATE [Suspect]
     Dosage: INJ
  2. DESOXYN [Suspect]
     Dosage: INJ

REACTIONS (8)
  - BRAIN OEDEMA [None]
  - DRUG ABUSER [None]
  - DRUG INTERACTION POTENTIATION [None]
  - HEPATIC STEATOSIS [None]
  - HEPATITIS C [None]
  - HYPERTHERMIA [None]
  - PULMONARY OEDEMA [None]
  - VOMITING [None]
